FAERS Safety Report 18070106 (Version 4)
Quarter: 2025Q2

REPORT INFORMATION
  Report Type: Report from Study
  Country: US (occurrence: US)
  Receive Date: 20200727
  Receipt Date: 20250618
  Transmission Date: 20250717
  Serious: Yes (Other)
  Sender: TAKEDA
  Company Number: US-SHIRE-US202023839

PATIENT
  Sex: Male
  Weight: 66 kg

DRUGS (34)
  1. HUMAN IMMUNOGLOBULIN G [Suspect]
     Active Substance: HUMAN IMMUNOGLOBULIN G
     Indication: Immunodeficiency common variable
  2. HUMAN IMMUNOGLOBULIN G [Suspect]
     Active Substance: HUMAN IMMUNOGLOBULIN G
     Dosage: 30 GRAM, Q3WEEKS
     Dates: start: 20190828
  3. HUMAN IMMUNOGLOBULIN G [Suspect]
     Active Substance: HUMAN IMMUNOGLOBULIN G
  4. MELATONIN [Concomitant]
     Active Substance: MELATONIN
  5. ACETAMINOPHEN [Concomitant]
     Active Substance: ACETAMINOPHEN
  6. DIPHENHYDRAMINE [Concomitant]
     Active Substance: DIPHENHYDRAMINE
  7. LIDOCAINE [Concomitant]
     Active Substance: LIDOCAINE
  8. SODIUM CHLORIDE [Concomitant]
     Active Substance: SODIUM CHLORIDE
  9. GAS-X [Concomitant]
     Active Substance: DIMETHICONE
  10. SODIUM CHLORIDE [Concomitant]
     Active Substance: SODIUM CHLORIDE
  11. EPINEPHRINE [Concomitant]
     Active Substance: EPINEPHRINE
  12. BELSOMRA [Concomitant]
     Active Substance: SUVOREXANT
  13. CELEBREX [Concomitant]
     Active Substance: CELECOXIB
  14. ZYRTEC [Concomitant]
     Active Substance: CETIRIZINE HYDROCHLORIDE
  15. LAMOTRIGINE [Concomitant]
     Active Substance: LAMOTRIGINE
  16. QUETIAPINE FUMARATE [Concomitant]
     Active Substance: QUETIAPINE FUMARATE
  17. DICYCLOMINE [Concomitant]
     Active Substance: DICYCLOMINE HYDROCHLORIDE
  18. TIZANIDINE [Concomitant]
     Active Substance: TIZANIDINE
  19. CLONAZEPAM [Concomitant]
     Active Substance: CLONAZEPAM
  20. HYDROXYZINE [Concomitant]
     Active Substance: HYDROXYZINE HYDROCHLORIDE
  21. MODAFINIL [Concomitant]
     Active Substance: MODAFINIL
  22. OMEPRAZOLE [Concomitant]
     Active Substance: OMEPRAZOLE
  23. BACLOFEN [Concomitant]
     Active Substance: BACLOFEN
  24. VITAMIN E [Concomitant]
     Active Substance: .ALPHA.-TOCOPHEROL
  25. PRASTERONE [Concomitant]
     Active Substance: PRASTERONE
  26. Echinacea Herb [Concomitant]
  27. PREGNENOLONE [Concomitant]
     Active Substance: PREGNENOLONE
  28. TRAZODONE [Concomitant]
     Active Substance: TRAZODONE HYDROCHLORIDE
  29. .GAMMA.-AMINOBUTYRIC ACID [Concomitant]
     Active Substance: .GAMMA.-AMINOBUTYRIC ACID
  30. VITAMIN C [Concomitant]
     Active Substance: ASCORBIC ACID
  31. VITAMIN D [Concomitant]
     Active Substance: VITAMIN D NOS
  32. MAGNESIUM [Concomitant]
     Active Substance: MAGNESIUM
  33. QUERCETIN DIHYDRATE [Concomitant]
     Active Substance: QUERCETIN DIHYDRATE
  34. TESTOSTERONE [Concomitant]
     Active Substance: TESTOSTERONE

REACTIONS (7)
  - Appendicitis [Unknown]
  - Gastrointestinal disorder [Unknown]
  - Weight decreased [Unknown]
  - Drug hypersensitivity [Unknown]
  - Product dose omission issue [Unknown]
  - Influenza like illness [Unknown]
  - Pruritus [Unknown]
